FAERS Safety Report 6398734-5 (Version None)
Quarter: 2009Q4

REPORT INFORMATION
  Report Type: 
  Country: None (occurrence: None)
  Receive Date: 20091013
  Receipt Date: 20091009
  Transmission Date: 20100525
  Serious: Yes (Life-Threatening, Other)
  Sender: FDA-Public Use
  Company Number: PHHY2009CA42560

PATIENT
  Sex: Female

DRUGS (12)
  1. CLOZARIL [Suspect]
     Indication: BIPOLAR I DISORDER
     Dosage: UNK
     Route: 048
     Dates: start: 19991222
  2. CLOZARIL [Suspect]
     Dosage: 25 MG ONE TABLET AT BED TIME
     Route: 048
  3. PROPRANOLOL HYDROCHLORIDE [Concomitant]
     Dosage: 1 TABLET IN THE MORNING
  4. LORAZEPAM [Concomitant]
     Dosage: 1 TABLET ONCE EVERY DAY
  5. LITHIUM CARBONATE [Concomitant]
     Dosage: 1 CAPSULE AT BED TIME
  6. METOCLOPRAMIDE HYDROCHLORIDE [Concomitant]
     Dosage: 10 MG; ONE TABLET FOUR TIMES A DAY
  7. DEXAMETHASONE 0.5MG TAB [Concomitant]
     Dosage: 1 TAB. ON EVENING OF CHEMO AND THEN TWICE A DAY FOR 3 DAYS
  8. ONDANSETRON HYDROCHLORIDE [Concomitant]
     Dosage: 8 MG; ONE TAB. ON EVENING OF CHEMO
  9. EPIRUBICIN [Concomitant]
     Dosage: 2MG/ML VIAL
  10. FLUOROURACIL [Concomitant]
     Dosage: 5 MG/100 ML
  11. CYCLOPHOSPHAMIDE [Concomitant]
  12. CEPHALEXIN MONOHYDRATE [Concomitant]
     Dosage: 500 MG TABLETS FOUR TIMES A DAY

REACTIONS (2)
  - BREAST CANCER [None]
  - BREAST CANCER FEMALE [None]
